FAERS Safety Report 5828766-4 (Version None)
Quarter: 2008Q3

REPORT INFORMATION
  Report Type: 
  Country: None (occurrence: None)
  Receive Date: 20080731
  Receipt Date: 20080717
  Transmission Date: 20090109
  Serious: Yes (Other)
  Sender: FDA-Public Use
  Company Number: IN-MERCK-0807USA04654

PATIENT
  Age: 9 Year
  Sex: Male

DRUGS (6)
  1. ELSPAR [Suspect]
     Indication: B PRECURSOR TYPE ACUTE LEUKAEMIA
     Route: 065
  2. DAUNORUBICIN [Concomitant]
     Indication: B PRECURSOR TYPE ACUTE LEUKAEMIA
     Route: 065
  3. PREDNISONE [Concomitant]
     Indication: B PRECURSOR TYPE ACUTE LEUKAEMIA
     Route: 048
  4. VINCRISTINE SULFATE [Suspect]
     Indication: B PRECURSOR TYPE ACUTE LEUKAEMIA
     Route: 065
  5. METHOTREXATE [Concomitant]
     Indication: B PRECURSOR TYPE ACUTE LEUKAEMIA
     Route: 065
  6. PRIMAXIN [Suspect]
     Indication: FEBRILE NEUTROPENIA
     Route: 065

REACTIONS (4)
  - FEBRILE NEUTROPENIA [None]
  - ILEUS PARALYTIC [None]
  - REVERSIBLE POSTERIOR LEUKOENCEPHALOPATHY SYNDROME [None]
  - TUMOUR LYSIS SYNDROME [None]
